FAERS Safety Report 8599336-2 (Version None)
Quarter: 2012Q3

REPORT INFORMATION
  Report Type: 
  Country: None (occurrence: None)
  Receive Date: 20120816
  Receipt Date: 20120815
  Transmission Date: 20120928
  Serious: Yes (Hospitalization)
  Sender: FDA-Public Use
  Company Number: US-ROCHE-1054886

PATIENT
  Age: 51 Year
  Sex: Female
  Weight: 130.3 kg

DRUGS (3)
  1. IXABEPILONE [Suspect]
     Indication: ENDOMETRIAL CANCER RECURRENT
     Dosage: LAST DOSE PRIOR TO SAE 11/JAN/2012
     Route: 042
     Dates: start: 20110907
  2. CARBOPLATIN [Suspect]
     Indication: ENDOMETRIAL CANCER RECURRENT
     Dosage: AUC = 6, OVER 30 MIN ON DAY 1 ON FOR 6 CYCLE, LAST DOSE PRIOR TO SAE 11/JAN/2012
     Route: 042
     Dates: start: 20110907
  3. AVASTIN [Suspect]
     Indication: ENDOMETRIAL CANCER RECURRENT
     Dosage: LAST DOSE PRIOR TO SAE 11/JAN/2012
     Route: 042
     Dates: start: 20110907

REACTIONS (7)
  - URINARY TRACT INFECTION [None]
  - DIVERTICULITIS [None]
  - VAGINAL DISCHARGE [None]
  - INFLAMMATION [None]
  - URINARY FISTULA [None]
  - ABDOMINAL PAIN [None]
  - PYREXIA [None]
